FAERS Safety Report 20194071 (Version 1)
Quarter: 2021Q4

REPORT INFORMATION
  Report Type: Spontaneous
  Country: US (occurrence: None)
  Receive Date: 20211215
  Receipt Date: 20211215
  Transmission Date: 20220303
  Serious: Yes (Life-Threatening, Hospitalization)
  Sender: FDA-Public Use
  Company Number: None

PATIENT
  Age: 65 Year
  Sex: Female
  Weight: 155.25 kg

DRUGS (1)
  1. JARDIANCE [Suspect]
     Active Substance: EMPAGLIFLOZIN
     Indication: Diabetes mellitus
     Dosage: OTHER QUANTITY : 1 TABLET(S);?
     Route: 048

REACTIONS (7)
  - Genital swelling [None]
  - Genital infection [None]
  - Fournier^s gangrene [None]
  - Drug ineffective [None]
  - Condition aggravated [None]
  - Near death experience [None]
  - Pyrexia [None]

NARRATIVE: CASE EVENT DATE: 20210923
